FAERS Safety Report 8322445-X (Version None)
Quarter: 2012Q2

REPORT INFORMATION
  Report Type: 
  Country: None (occurrence: None)
  Receive Date: 20120426
  Receipt Date: 20120405
  Transmission Date: 20120825
  Serious: Yes (Hospitalization)
  Sender: FDA-Public Use
  Company Number: 20120185

PATIENT
  Age: 72 Year
  Sex: Male
  Weight: 86.1834 kg

DRUGS (9)
  1. VENOFER [Suspect]
     Indication: IRON DEFICIENCY ANAEMIA
     Dosage: 200 MG INTRAVENOUS BOLUS
     Route: 040
     Dates: start: 20120123, end: 20120123
  2. LEVOTHYROXINE, 100 MCG DAILY ORAL UNK / UNK [Concomitant]
  3. SIMVASTATIN, 80 MG DAILY ORAL UNK / UNK [Concomitant]
  4. AMIODARONE, 100 MG DAILY ORAL UNK / UNK [Concomitant]
  5. TRAZADONE, 100 MG TWICE DAILY ORAL UNK / UNK [Concomitant]
  6. ASPIRIN, 81 MG DAILY ORAL UNK / UNK [Concomitant]
  7. PAXIL, 20 MG DAILY ORAL UNK / UNK [Concomitant]
  8. METOPROLOL, 25 MG DAILY ORAL UNK / UNK [Concomitant]
  9. FOLIC ACID, 1 MG DAILY ORAL UNK / UNK [Concomitant]

REACTIONS (17)
  - BLOOD CALCIUM DECREASED [None]
  - TREMOR [None]
  - BLOOD PRESSURE DECREASED [None]
  - BLOOD GLUCOSE INCREASED [None]
  - CHEST PAIN [None]
  - ANXIETY [None]
  - RED BLOOD CELL COUNT DECREASED [None]
  - HYPERHIDROSIS [None]
  - RESTLESSNESS [None]
  - ELECTROCARDIOGRAM T WAVE ABNORMAL [None]
  - BLOOD UREA INCREASED [None]
  - HEART RATE DECREASED [None]
  - CHRONIC OBSTRUCTIVE PULMONARY DISEASE [None]
  - BLOOD CREATINE INCREASED [None]
  - INFUSION RELATED REACTION [None]
  - DYSPNOEA [None]
  - HYPERSENSITIVITY [None]
